FAERS Safety Report 21275374 (Version 1)
Quarter: 2022Q3

REPORT INFORMATION
  Report Type: Spontaneous
  Country: US (occurrence: None)
  Receive Date: 20220831
  Receipt Date: 20220831
  Transmission Date: 20221027
  Serious: Yes (Hospitalization)
  Sender: FDA-Public Use
  Company Number: None

PATIENT
  Age: 56 Year
  Sex: Female
  Weight: 102 kg

DRUGS (7)
  1. OLAY REGENERIST REGENERATING BROAD SPECTRUM SPF 50 [Suspect]
     Active Substance: AVOBENZONE\HOMOSALATE\OCTISALATE\OCTOCRYLENE\OXYBENZONE
     Dosage: FREQUENCY : TWICE A DAY;?
     Route: 061
     Dates: start: 20220311, end: 20220312
  2. jergens smoothing aloe refreshing body lotion [Concomitant]
  3. HYDROCHLOROTHIAZIDE [Concomitant]
     Active Substance: HYDROCHLOROTHIAZIDE
  4. METHOCARBAMOL [Concomitant]
     Active Substance: METHOCARBAMOL
  5. NAPROXEN [Concomitant]
     Active Substance: NAPROXEN
  6. AMLODIPINE [Concomitant]
     Active Substance: AMLODIPINE BESYLATE
  7. FINASTERIDE [Concomitant]
     Active Substance: FINASTERIDE

REACTIONS (21)
  - Blister [None]
  - Erysipelas [None]
  - Dermatitis contact [None]
  - Rash [None]
  - Hypersensitivity [None]
  - Dermatitis allergic [None]
  - Ocular hyperaemia [None]
  - Erythema [None]
  - Dry skin [None]
  - Ocular hyperaemia [None]
  - Skin exfoliation [None]
  - Eye swelling [None]
  - Swelling face [None]
  - Swelling [None]
  - Vision blurred [None]
  - Eye pain [None]
  - Skin irritation [None]
  - Skin burning sensation [None]
  - Pruritus [None]
  - Angiofibroma [None]
  - Eczema [None]

NARRATIVE: CASE EVENT DATE: 20220312
